FAERS Safety Report 12268128 (Version 1)
Quarter: 2016Q2

REPORT INFORMATION
  Report Type: Spontaneous
  Country: IT (occurrence: IT)
  Receive Date: 20160414
  Receipt Date: 20160414
  Transmission Date: 20160815
  Serious: Yes (Hospitalization)
  Sender: FDA-Public Use
  Company Number: IT-FRESENIUS KABI-FK201601858

PATIENT
  Age: 87 Year
  Sex: Female

DRUGS (1)
  1. LEVOFLOXACIN KABI 5 MG / ML [Suspect]
     Active Substance: LEVOFLOXACIN
     Indication: LUNG INFECTION
     Route: 042
     Dates: start: 20160321, end: 20160323

REACTIONS (2)
  - Hallucination, visual [Recovered/Resolved]
  - Delirium [Recovered/Resolved]

NARRATIVE: CASE EVENT DATE: 20160323
